FAERS Safety Report 7128828-8 (Version None)
Quarter: 2010Q4

REPORT INFORMATION
  Report Type: 
  Country: None (occurrence: None)
  Receive Date: 20101130
  Receipt Date: 20101123
  Transmission Date: 20110411
  Serious: Yes (Hospitalization)
  Sender: FDA-Public Use
  Company Number: US-B.I. PHARMACEUTICALS,INC./RIDGEFIELD-2010-BP-13189BP

PATIENT
  Sex: Male

DRUGS (14)
  1. PRADAXA [Suspect]
     Indication: ATRIAL FIBRILLATION
     Dosage: 300 MG
     Route: 048
     Dates: end: 20101123
  2. FLOMAX [Suspect]
  3. LASIX [Concomitant]
  4. LOPRESSOR [Concomitant]
  5. LISINOPRIL [Concomitant]
  6. ZOLOFT [Concomitant]
  7. TRICOR [Concomitant]
  8. SINGULAIR [Concomitant]
  9. ZETIA [Concomitant]
  10. MULTI-VITAMIN [Concomitant]
  11. LIPITOR [Concomitant]
  12. CELEBREX [Concomitant]
  13. ALLOPURINOL [Concomitant]
  14. PERCOCET [Concomitant]

REACTIONS (3)
  - ACTIVATED PARTIAL THROMBOPLASTIN TIME PROLONGED [None]
  - CHRONIC OBSTRUCTIVE PULMONARY DISEASE [None]
  - RENAL FAILURE [None]
